FAERS Safety Report 21484901 (Version 2)
Quarter: 2023Q1

REPORT INFORMATION
  Report Type: Spontaneous
  Country: US (occurrence: US)
  Receive Date: 20221020
  Receipt Date: 20230217
  Transmission Date: 20230417
  Serious: Yes (Death)
  Sender: FDA-Public Use
  Company Number: US-CELLTRION INC.-2022US010344

PATIENT

DRUGS (1)
  1. INFLECTRA [Suspect]
     Active Substance: INFLIXIMAB-DYYB
     Indication: Product used for unknown indication
     Dosage: DIRECTIONS: INJECT 500 MG OF INFLECTRA FREQUENCY: EVERY 8 WKS QUANTITY: 100ML } 100MG REFILLS: 10
     Route: 065

REACTIONS (2)
  - Death [Fatal]
  - Unevaluable event [Unknown]
